FAERS Safety Report 8130914-0 (Version None)
Quarter: 2012Q1

REPORT INFORMATION
  Report Type: 
  Country: None (occurrence: None)
  Receive Date: 20120213
  Receipt Date: 20120206
  Transmission Date: 20120608
  Serious: No
  Sender: FDA-Public Use
  Company Number: US-PFIZER INC-2012032471

PATIENT
  Sex: Female
  Weight: 25.592 kg

DRUGS (2)
  1. SOLU-MEDROL [Suspect]
     Indication: CROHN'S DISEASE
     Dosage: 80MG ONCE A DAY
     Route: 030
  2. DEPO-MEDROL [Suspect]
     Indication: CROHN'S DISEASE
     Dosage: 80 MG, UNK
     Route: 042
     Dates: start: 20120204

REACTIONS (2)
  - WRONG DRUG ADMINISTERED [None]
  - BLOOD TEST ABNORMAL [None]
